FAERS Safety Report 6820860-4 (Version None)
Quarter: 2010Q3

REPORT INFORMATION
  Report Type: 
  Country: None (occurrence: None)
  Receive Date: 20100707
  Receipt Date: 20070629
  Transmission Date: 20110219
  Serious: Yes (Other)
  Sender: FDA-Public Use
  Company Number: US-PFIZER INC-2007053861

PATIENT
  Sex: Female
  Weight: 72.6 kg

DRUGS (4)
  1. ZOLOFT [Suspect]
     Indication: DEPRESSION
     Dates: start: 19940101
  2. LEVOXYL [Suspect]
     Indication: THYROID DISORDER
  3. DIPYRIDAMOLE [Concomitant]
  4. BUSPIRONE HCL [Concomitant]

REACTIONS (11)
  - ABDOMINAL DISCOMFORT [None]
  - ABDOMINAL PAIN UPPER [None]
  - BLOOD GLUCOSE DECREASED [None]
  - CHRONIC FATIGUE SYNDROME [None]
  - DIZZINESS [None]
  - FATIGUE [None]
  - HEADACHE [None]
  - HYPERSENSITIVITY [None]
  - INSOMNIA [None]
  - MIGRAINE [None]
  - PARAESTHESIA [None]
